FAERS Safety Report 24868888 (Version 1)
Quarter: 2025Q1

REPORT INFORMATION
  Report Type: Spontaneous
  Country: US (occurrence: US)
  Receive Date: 20250121
  Receipt Date: 20250121
  Transmission Date: 20250408
  Serious: Yes (Other)
  Sender: AMERICAN REGENT
  Company Number: US-AMERICAN REGENT INC-2025000237

PATIENT
  Age: 43 Year
  Sex: Female

DRUGS (1)
  1. EPINEPHRINE [Suspect]
     Active Substance: EPINEPHRINE
     Indication: Product used for unknown indication

REACTIONS (1)
  - Oesophageal varices haemorrhage [Recovering/Resolving]
